FAERS Safety Report 9838817 (Version 1)
Quarter: 2014Q1

REPORT INFORMATION
  Report Type: Report from Study
  Country: US (occurrence: US)
  Receive Date: 20140123
  Receipt Date: 20140123
  Transmission Date: 20141002
  Serious: Yes (Hospitalization, Other)
  Sender: FDA-Public Use
  Company Number: US-ABBVIE-14P-163-1191189-00

PATIENT
  Sex: Female
  Weight: 115.77 kg

DRUGS (7)
  1. HUMIRA [Suspect]
     Indication: RHEUMATOID ARTHRITIS
     Dates: start: 2007, end: 2012
  2. HUMIRA [Suspect]
     Dates: start: 2012, end: 2013
  3. HUMIRA [Suspect]
     Dates: start: 2013
  4. FOLIC ACID [Concomitant]
     Indication: VITAMIN SUPPLEMENTATION
  5. VITAMIN D [Concomitant]
     Indication: VITAMIN SUPPLEMENTATION
  6. CELEXA [Concomitant]
     Indication: ANXIETY
  7. VASOTEC [Concomitant]
     Indication: HYPERTENSION

REACTIONS (9)
  - Post procedural haemorrhage [Recovered/Resolved]
  - Rectal adenoma [Recovered/Resolved]
  - Rectal adenoma [Recovered/Resolved]
  - Dermatitis [Not Recovered/Not Resolved]
  - Dermatitis [Not Recovered/Not Resolved]
  - Arthritis [Recovered/Resolved]
  - Large intestine polyp [Recovered/Resolved]
  - Large intestine polyp [Recovered/Resolved]
  - Arthralgia [Recovered/Resolved]
